FAERS Safety Report 10048325 (Version 2)
Quarter: 2014Q2

REPORT INFORMATION
  Report Type: Other
  Country: US (occurrence: US)
  Receive Date: 20140331
  Receipt Date: 20140603
  Transmission Date: 20141212
  Serious: Yes (Death)
  Sender: FDA-Public Use
  Company Number: US-ACORDA-ACO_102440_2014

PATIENT
  Age: 56 Year
  Sex: Male
  Weight: 86.17 kg

DRUGS (4)
  1. AMPYRA [Suspect]
     Indication: PRODUCT USED FOR UNKNOWN INDICATION
     Dosage: 10 MG, BID
     Route: 048
  2. PROVIGIL [Concomitant]
     Indication: FATIGUE
     Dosage: 200 MG, QAM
     Route: 048
     Dates: start: 20120130
  3. GILENYA [Concomitant]
     Indication: MULTIPLE SCLEROSIS
     Dosage: 0.5 MG, QD
     Route: 048
  4. LINZESS [Concomitant]
     Indication: CONSTIPATION
     Dosage: 145 ?G, QD PRN
     Route: 048
     Dates: start: 20130625

REACTIONS (1)
  - Death [Fatal]
